FAERS Safety Report 12689390 (Version 1)
Quarter: 2016Q3

REPORT INFORMATION
  Report Type: Spontaneous
  Country: US (occurrence: None)
  Receive Date: 20160825
  Receipt Date: 20160825
  Transmission Date: 20161109
  Serious: No
  Sender: FDA-Public Use
  Company Number: None

PATIENT
  Age: 63 Year
  Sex: Female
  Weight: 124.74 kg

DRUGS (2)
  1. SYNTHROID [Concomitant]
     Active Substance: LEVOTHYROXINE SODIUM
  2. LEVOTHYROXINE. [Suspect]
     Active Substance: LEVOTHYROXINE
     Indication: HYPOTHYROIDISM
     Dosage: 75MCG 1 DAILY  MOUTH
     Route: 048
     Dates: start: 2006, end: 2006

REACTIONS (7)
  - Headache [None]
  - Product substitution issue [None]
  - Hyperhidrosis [None]
  - Alopecia [None]
  - Weight increased [None]
  - Irritability [None]
  - Depression [None]

NARRATIVE: CASE EVENT DATE: 2010
